FAERS Safety Report 5699686-3 (Version None)
Quarter: 2008Q2

REPORT INFORMATION
  Report Type: 
  Country: None (occurrence: None)
  Receive Date: 20080410
  Receipt Date: 20080328
  Transmission Date: 20081010
  Serious: Yes (Other)
  Sender: FDA-Public Use
  Company Number: PHHY2008BR04077

PATIENT
  Sex: Female

DRUGS (3)
  1. INSULIN [Concomitant]
     Dosage: 40 IN THE MORNING AND 20 IN THE AFTERNOON.
  2. GALVUS MET [Suspect]
     Dosage: 2 TABLETS/DAY
     Route: 048
  3. GALVUS [Suspect]

REACTIONS (1)
  - HYPERGLYCAEMIA [None]
